FAERS Safety Report 18299562 (Version 3)
Quarter: 2022Q2

REPORT INFORMATION
  Report Type: Spontaneous
  Country: US (occurrence: US)
  Receive Date: 20200923
  Receipt Date: 20220411
  Transmission Date: 20220721
  Serious: Yes (Hospitalization, Other)
  Sender: FDA-Public Use
  Company Number: US-GLAXOSMITHKLINE-US2020GSK188269

PATIENT
  Age: 71 Year
  Sex: Male
  Weight: 86.168 kg

DRUGS (3)
  1. ZANTAC [Suspect]
     Active Substance: RANITIDINE HYDROCHLORIDE
     Indication: Product used for unknown indication
     Dosage: UNK
     Route: 048
  2. ZANTAC [Suspect]
     Active Substance: RANITIDINE HYDROCHLORIDE
     Indication: Gastric disorder
     Dosage: 75 MG, AS NEEDED (THREE TO FOUR TIMES A WEEK TO SOMETIMES TWICE A WEEK)
     Route: 065
     Dates: start: 2003, end: 2018
  3. RANITIDINE [Suspect]
     Active Substance: RANITIDINE
     Indication: Gastric disorder
     Dosage: 75 MG, AS NEEDED (THREE TO FOUR TIMES A WEEK TO SOMETIMES TWICE A WEEK)
     Route: 065
     Dates: start: 2003, end: 2018

REACTIONS (18)
  - Metastatic carcinoma of the bladder [Unknown]
  - Urethral stenosis [Unknown]
  - Bladder mass [Unknown]
  - Bladder cancer [Unknown]
  - Metastases to prostate [Unknown]
  - Hydronephrosis [Unknown]
  - Bladder squamous cell carcinoma stage unspecified [Unknown]
  - Urethral meatus stenosis [Unknown]
  - Bladder disorder [Unknown]
  - Urothelium erosion [Unknown]
  - Benign prostatic hyperplasia [Unknown]
  - Prostatomegaly [Unknown]
  - Urinary incontinence [Unknown]
  - Bladder hypertrophy [Unknown]
  - Bladder outlet obstruction [Unknown]
  - Bladder neoplasm [Unknown]
  - Bladder dilatation [Unknown]
  - Bladder dysfunction [Unknown]

NARRATIVE: CASE EVENT DATE: 20190101
